FAERS Safety Report 8437232-1 (Version None)
Quarter: 2012Q2

REPORT INFORMATION
  Report Type: 
  Country: None (occurrence: None)
  Receive Date: 20120323
  Receipt Date: 20110624
  Transmission Date: 20120825
  Serious: Yes (Death)
  Sender: FDA-Public Use
  Company Number: 163-21880-11053172

PATIENT
  Age: 74 Year
  Sex: Male
  Weight: 68.9 kg

DRUGS (2)
  1. REVLIMID [Suspect]
     Indication: PARAPROTEINAEMIA
     Dosage: 10 MG, 1 IN 1 D, PO
     Route: 048
     Dates: start: 20101223, end: 20110101
  2. REVLIMID [Suspect]
     Indication: PARAPROTEINAEMIA
     Dosage: 5 MG, 1 IN 1 D, PO
     Route: 048
     Dates: start: 20110127, end: 20110514

REACTIONS (1)
  - CARDIAC FAILURE [None]
